FAERS Safety Report 11924688 (Version 2)
Quarter: 2016Q1

REPORT INFORMATION
  Report Type: Report from Study
  Country: US (occurrence: US)
  Receive Date: 20160118
  Receipt Date: 20160120
  Transmission Date: 20160526
  Serious: Yes (Hospitalization)
  Sender: FDA-Public Use
  Company Number: US-BAYER-2015-497728

PATIENT
  Age: 75 Year
  Sex: Female

DRUGS (8)
  1. PREDNISONE. [Concomitant]
     Active Substance: PREDNISONE
  2. NEXAVAR [Suspect]
     Active Substance: SORAFENIB
     Indication: CHOLANGIOCARCINOMA
     Dosage: 200 MG, BID
     Route: 048
     Dates: start: 20151223, end: 20160108
  3. CISPLATIN. [Concomitant]
     Active Substance: CISPLATIN
  4. CALCIUM W/MINERALS/VITAMIN D NOS [Concomitant]
  5. NEXAVAR [Suspect]
     Active Substance: SORAFENIB
     Indication: HEPATIC CANCER
  6. CALCIUM CARBONATE W/MAGNESIUM [Concomitant]
  7. TYLENOL EXTRA STRENGTH [Concomitant]
     Active Substance: ACETAMINOPHEN
  8. LYRICA [Concomitant]
     Active Substance: PREGABALIN

REACTIONS (7)
  - Renal failure [Not Recovered/Not Resolved]
  - Decreased appetite [None]
  - Drug intolerance [Not Recovered/Not Resolved]
  - Hospitalisation [None]
  - Off label use [None]
  - Peripheral coldness [None]
  - Asthenia [None]

NARRATIVE: CASE EVENT DATE: 201512
